FAERS Safety Report 7277753-0 (Version None)
Quarter: 2011Q1

REPORT INFORMATION
  Report Type: 
  Country: None (occurrence: None)
  Receive Date: 20110207
  Receipt Date: 20100115
  Transmission Date: 20110831
  Serious: No
  Sender: FDA-Public Use
  Company Number: A0838740A

PATIENT
  Age: 27 Year
  Sex: Female

DRUGS (2)
  1. TRIVORA-21 [Concomitant]
  2. OLUX E [Suspect]
     Indication: PSORIASIS
     Dosage: 1APP SINGLE DOSE
     Route: 061
     Dates: start: 20100109, end: 20100109

REACTIONS (3)
  - CONDITION AGGRAVATED [None]
  - PRURITUS [None]
  - DRUG INEFFECTIVE [None]
